FAERS Safety Report 8721062 (Version 2)
Quarter: 2012Q4

REPORT INFORMATION
  Report Type: 
  Country: US (occurrence: US)
  Receive Date: 20120813
  Receipt Date: 20120907
  Transmission Date: 20130627
  Serious: Yes (Hospitalization)
  Sender: FDA-Public Use
  Company Number: US-PFIZER INC-2012193083

PATIENT
  Age: 46 Year
  Sex: Male
  Weight: 133 kg

DRUGS (6)
  1. GLUCOTROL [Suspect]
     Indication: DIABETES MELLITUS
     Dosage: 5 mg, 2x/day
     Route: 048
  2. LIPITOR [Suspect]
     Indication: BLOOD CHOLESTEROL INCREASED
     Dosage: UNK
     Dates: end: 2012
  3. ALLOPURINOL [Concomitant]
     Dosage: 300 mg, 1x/day
  4. NEXIUM [Concomitant]
     Dosage: 40 mg, 1x/day
  5. COLCRYS [Concomitant]
     Dosage: 0.6 mg, 1x/day
  6. LISINOPRIL [Concomitant]
     Dosage: 20 mg, 1x/day

REACTIONS (4)
  - Renal failure [Recovering/Resolving]
  - Dehydration [Recovering/Resolving]
  - Blood triglycerides increased [Unknown]
  - Blood cholesterol increased [Unknown]
